FAERS Safety Report 5158219-0 (Version None)
Quarter: 2006Q4

REPORT INFORMATION
  Report Type: 
  Country: None (occurrence: None)
  Receive Date: 20061121
  Receipt Date: 20061121
  Transmission Date: 20070319
  Serious: Yes (Hospitalization)
  Sender: FDA-Public Use
  Company Number: None

PATIENT
  Age: 67 Year
  Sex: Female

DRUGS (7)
  1. DILANTIN [Suspect]
     Indication: CONVULSION
     Dosage: 300MG 400MG ALTERNATING DAILY PO
     Route: 048
  2. DILANTIN [Suspect]
     Indication: METASTASES TO CENTRAL NERVOUS SYSTEM
     Dosage: 300MG 400MG ALTERNATING DAILY PO
     Route: 048
  3. TARCEVA [Suspect]
     Indication: NON-SMALL CELL LUNG CANCER METASTATIC
     Dosage: 150 MG DAILY PO
     Route: 048
  4. COLACE [Concomitant]
  5. FOLIC ACID [Concomitant]
  6. ZOLOFT [Concomitant]
  7. ZANTAC [Concomitant]

REACTIONS (6)
  - ASTHENIA [None]
  - DRUG INTERACTION [None]
  - DRUG TOXICITY [None]
  - GAIT DISTURBANCE [None]
  - LETHARGY [None]
  - MENTAL STATUS CHANGES [None]
